FAERS Safety Report 8463265 (Version 3)
Quarter: 2013Q2

REPORT INFORMATION
  Report Type: Report from Study
  Country: GB (occurrence: GB)
  Receive Date: 20120316
  Receipt Date: 20130426
  Transmission Date: 20140414
  Serious: Yes (Hospitalization)
  Sender: FDA-Public Use
  Company Number: GB-MPIJNJ-2012-01734

PATIENT
  Sex: 0

DRUGS (5)
  1. VELCADE [Suspect]
     Indication: PLASMA CELL MYELOMA
     Dosage: 2.5 MG, UNK
     Route: 042
     Dates: start: 20120131, end: 20120227
  2. DOXORUBICIN [Suspect]
     Indication: PLASMA CELL MYELOMA
     Dosage: 18 MG, UNK
     Route: 042
     Dates: start: 20120131, end: 20120228
  3. DEXAMETHASONE [Suspect]
     Indication: PLASMA CELL MYELOMA
     Dosage: 40 MG, UNK
     Route: 048
     Dates: start: 20120131, end: 20120227
  4. OXYCODONE [Suspect]
     Indication: PRODUCT USED FOR UNKNOWN INDICATION
     Route: 065
  5. MORPHINE SULFATE [Suspect]
     Route: 065

REACTIONS (4)
  - Constipation [Recovered/Resolved]
  - Abdominal distension [Recovered/Resolved]
  - Drug ineffective [None]
  - Intestinal dilatation [None]
